FAERS Safety Report 5187205-X (Version None)
Quarter: 2006Q4

REPORT INFORMATION
  Report Type: 
  Country: None (occurrence: None)
  Receive Date: 20061214
  Receipt Date: 20061201
  Transmission Date: 20070319
  Serious: Yes (Death)
  Sender: FDA-Public Use
  Company Number: 2006150315

PATIENT
  Age: 69 Year
  Sex: Male
  Weight: 60 kg

DRUGS (12)
  1. ZYVOX [Suspect]
     Indication: CHOLANGITIS SUPPURATIVE
     Dosage: 1200 MG (600 MG, 2 IN 1 D)
     Dates: start: 20060503, end: 20060516
  2. PIPERACILLIN SODIUM AND TAZOBACTAM SODIUM [Concomitant]
  3. SEPTRA [Concomitant]
  4. CEFTAZIDIME (CEFTAZIDIME) [Concomitant]
  5. LEVOFLOXACIN [Concomitant]
  6. METRONIDAZOLE [Concomitant]
  7. METRONIDAZOLE [Concomitant]
  8. METRONIDAZOLE [Concomitant]
  9. AMPHOTERICIN B [Concomitant]
  10. DILTIAZEM HYDROCHLORIDE [Concomitant]
  11. DILTIAZEM HYDROCHLORIDE [Concomitant]
  12. DILTIAZEM HYDROCHLORIDE [Concomitant]

REACTIONS (7)
  - ACINETOBACTER INFECTION [None]
  - ATRIAL FIBRILLATION [None]
  - BACTERIA BLOOD IDENTIFIED [None]
  - BACTERIA SPUTUM IDENTIFIED [None]
  - DRUG INEFFECTIVE [None]
  - HEPATIC FAILURE [None]
  - LEUKOPENIA [None]
